FAERS Safety Report 7177233-7 (Version None)
Quarter: 2010Q4

REPORT INFORMATION
  Report Type: 
  Country: None (occurrence: None)
  Receive Date: 20101220
  Receipt Date: 20101207
  Transmission Date: 20110411
  Serious: Yes (Other)
  Sender: FDA-Public Use
  Company Number: BR-AMGEN-BRASP2010009619

PATIENT

DRUGS (1)
  1. ENBREL [Suspect]
     Dosage: UNK
     Route: 058
     Dates: start: 20100901

REACTIONS (3)
  - DRUG INEFFECTIVE [None]
  - PSORIASIS [None]
  - SKIN LESION [None]
